FAERS Safety Report 11962709 (Version 2)
Quarter: 2016Q1

REPORT INFORMATION
  Report Type: Report from Study
  Country: US (occurrence: US)
  Receive Date: 20160126
  Receipt Date: 20160202
  Transmission Date: 20160526
  Serious: No
  Sender: FDA-Public Use
  Company Number: US-ABBVIE-15K-163-1360676-00

PATIENT
  Age: 62 Year
  Sex: Female

DRUGS (1)
  1. HUMIRA [Suspect]
     Active Substance: ADALIMUMAB
     Indication: PSORIATIC ARTHROPATHY
     Route: 065
     Dates: start: 20150127

REACTIONS (15)
  - Injection site rash [Recovered/Resolved]
  - Serum sickness [Unknown]
  - Blood cholesterol increased [Unknown]
  - Erythema [Unknown]
  - Blood triglycerides increased [Unknown]
  - Drug effect incomplete [Not Recovered/Not Resolved]
  - Injection site erythema [Recovered/Resolved]
  - Lymphadenopathy [Unknown]
  - Pyrexia [Recovered/Resolved]
  - Incorrect dose administered [Unknown]
  - Blood glucose increased [Unknown]
  - Device issue [Unknown]
  - Malaise [Unknown]
  - Tremor [Unknown]
  - Urticaria [Unknown]

NARRATIVE: CASE EVENT DATE: 2015
